FAERS Safety Report 10058646 (Version 1)
Quarter: 2014Q2

REPORT INFORMATION
  Report Type: Spontaneous
  Country: PE (occurrence: PE)
  Receive Date: 20140404
  Receipt Date: 20140404
  Transmission Date: 20141212
  Serious: Yes (Death)
  Sender: FDA-Public Use
  Company Number: PE-PFIZER INC-2014094015

PATIENT
  Age: 89 Year
  Sex: Male

DRUGS (1)
  1. XANAX XR [Suspect]
     Dosage: UNK
     Route: 048
     Dates: end: 20140318

REACTIONS (1)
  - Death [Fatal]
